FAERS Safety Report 24324372 (Version 1)
Quarter: 2024Q3

REPORT INFORMATION
  Report Type: Spontaneous
  Country: US (occurrence: US)
  Receive Date: 20240916
  Receipt Date: 20240916
  Transmission Date: 20241017
  Serious: No
  Sender: Haleon PLC
  Company Number: US-HALEON-2197061

PATIENT
  Sex: Female

DRUGS (1)
  1. LAMISIL [Suspect]
     Active Substance: TERBINAFINE HYDROCHLORIDE
     Indication: Product used for unknown indication
     Dosage: EXPDATE:20260430 , 1% CREAM 30G SMALLER THAN A DIME SIZE
     Route: 061
     Dates: start: 20240812

REACTIONS (2)
  - Drug ineffective [Unknown]
  - No adverse event [Unknown]
